FAERS Safety Report 17563269 (Version 1)
Quarter: 2020Q1

REPORT INFORMATION
  Report Type: Spontaneous
  Country: US (occurrence: US)
  Receive Date: 20200319
  Receipt Date: 20200319
  Transmission Date: 20200409
  Serious: No
  Sender: FDA-Public Use
  Company Number: US-TEVA-2020-US-1202550

PATIENT
  Sex: Female

DRUGS (1)
  1. GLATIRAMER ACETATE. [Suspect]
     Active Substance: GLATIRAMER ACETATE
     Dosage: AUTO INJECTOR
     Route: 065

REACTIONS (4)
  - Urticaria [Unknown]
  - Flushing [Unknown]
  - Chest pain [Unknown]
  - Device issue [Unknown]
